FAERS Safety Report 6012040-X (Version None)
Quarter: 2008Q4

REPORT INFORMATION
  Report Type: 
  Country: None (occurrence: None)
  Receive Date: 20081216
  Receipt Date: 20080618
  Transmission Date: 20090506
  Serious: Yes (Other)
  Sender: FDA-Public Use
  Company Number: US-WYE-H04585308

PATIENT
  Age: 77 Year
  Sex: Female
  Weight: 68.1 kg

DRUGS (5)
  1. EFFEXOR XR [Suspect]
     Indication: ANXIETY
     Dosage: 75 MG 1X PER 1 DAY, ORAL ; ^ON AND OFF DOSE UNSPECIFEID^, ORAL
     Route: 048
     Dates: start: 20050101, end: 20080108
  2. EFFEXOR XR [Suspect]
     Indication: DEPRESSION
     Dosage: 75 MG 1X PER 1 DAY, ORAL ; ^ON AND OFF DOSE UNSPECIFEID^, ORAL
     Route: 048
     Dates: start: 20050101, end: 20080108
  3. EFFEXOR XR [Suspect]
     Indication: ANXIETY
     Dosage: 75 MG 1X PER 1 DAY, ORAL ; ^ON AND OFF DOSE UNSPECIFEID^, ORAL
     Route: 048
     Dates: start: 20080109, end: 20080421
  4. EFFEXOR XR [Suspect]
     Indication: DEPRESSION
     Dosage: 75 MG 1X PER 1 DAY, ORAL ; ^ON AND OFF DOSE UNSPECIFEID^, ORAL
     Route: 048
     Dates: start: 20080109, end: 20080421
  5. LIPITOR [Concomitant]

REACTIONS (1)
  - HEPATITIS [None]
